FAERS Safety Report 13719118 (Version 3)
Quarter: 2018Q3

REPORT INFORMATION
  Report Type: Spontaneous
  Country: JP (occurrence: JP)
  Receive Date: 20170705
  Receipt Date: 20180928
  Transmission Date: 20181010
  Serious: Yes (Hospitalization)
  Sender: FDA-Public Use
  Company Number: JP-ELI_LILLY_AND_COMPANY-JP201707000450

PATIENT
  Age: 64 Year
  Sex: Male

DRUGS (6)
  1. ERBITUX [Suspect]
     Active Substance: CETUXIMAB
     Dosage: UNK UNK, WEEKLY (1/W)
     Route: 042
     Dates: start: 2015, end: 20150827
  2. CARBOPLATIN. [Suspect]
     Active Substance: CARBOPLATIN
     Indication: HEAD AND NECK CANCER
     Dosage: UNK, UNKNOWN
     Route: 065
     Dates: start: 20150206, end: 20150313
  3. ERBITUX [Suspect]
     Active Substance: CETUXIMAB
     Indication: HEAD AND NECK CANCER
     Dosage: UNK UNK, WEEKLY (1/W)
     Route: 041
     Dates: start: 20150203, end: 20150203
  4. DEXART [Concomitant]
     Active Substance: DEXAMETHASONE SODIUM PHOSPHATE
     Indication: PREMEDICATION
     Dosage: UNK
     Route: 042
     Dates: start: 20150203
  5. POLARAMINE [Concomitant]
     Active Substance: DEXCHLORPHENIRAMINE MALEATE
     Indication: PREMEDICATION
     Dosage: UNK
     Route: 042
     Dates: start: 20150203
  6. 5?FU                               /00098801/ [Concomitant]
     Active Substance: FLUOROURACIL
     Indication: HEAD AND NECK CANCER
     Dosage: UNK, UNKNOWN
     Route: 065
     Dates: start: 20150203

REACTIONS (7)
  - Hypercalcaemia [Unknown]
  - Blood pressure increased [Unknown]
  - Renal tubular disorder [Unknown]
  - Hypomagnesaemia [Recovering/Resolving]
  - Blood creatinine increased [Not Recovered/Not Resolved]
  - Inappropriate antidiuretic hormone secretion [Unknown]
  - Decreased appetite [Recovered/Resolved]

NARRATIVE: CASE EVENT DATE: 20150325
